FAERS Safety Report 8791809 (Version 5)
Quarter: 2013Q1

REPORT INFORMATION
  Report Type: Spontaneous
  Country: US (occurrence: US)
  Receive Date: 20120918
  Receipt Date: 20130306
  Transmission Date: 20140127
  Serious: Yes (Hospitalization, Other)
  Sender: FDA-Public Use
  Company Number: US-009507513-1209USA002314

PATIENT
  Sex: Female

DRUGS (9)
  1. FOSAMAX [Suspect]
     Indication: OSTEOPOROSIS
     Dosage: 70 MG, UNK
     Route: 048
     Dates: start: 200107, end: 200606
  2. FOSAMAX PLUS D [Suspect]
     Indication: OSTEOPOROSIS
     Dosage: 70MG/2800 IU
     Route: 048
     Dates: start: 200607
  3. ALENDRONATE SODIUM [Suspect]
     Indication: OSTEOPOROSIS
     Dosage: 70 MG, UNK
     Route: 048
     Dates: start: 200902, end: 201009
  4. CLINICIANS BONECARE [Concomitant]
     Dosage: 1200 MG, QD
     Route: 048
     Dates: start: 1986
  5. CALCIUM (UNSPECIFIED) [Concomitant]
     Dosage: 500 MG, BID
     Route: 048
     Dates: start: 1986
  6. ORIGIN FLAX OIL [Concomitant]
     Dosage: UNK
     Route: 048
     Dates: start: 1986
  7. OMEGA-3 MARINE TRIGLYCERIDES [Concomitant]
     Dosage: 150 MG, QD
     Route: 048
     Dates: start: 1986
  8. VITAMINS (UNSPECIFIED) [Concomitant]
     Route: 048
  9. GABAPENTIN [Concomitant]

REACTIONS (22)
  - Femur fracture [Unknown]
  - Open reduction of fracture [Unknown]
  - Hypertension [Unknown]
  - Cholecystectomy [Unknown]
  - Medical device removal [Unknown]
  - Low turnover osteopathy [Unknown]
  - Osteopenia [Unknown]
  - Device failure [Unknown]
  - Haemorrhagic anaemia [Recovering/Resolving]
  - Transfusion [Unknown]
  - Subcutaneous haematoma [Unknown]
  - Appendicectomy [Unknown]
  - Bunion operation [Unknown]
  - Trigeminal neuralgia [Unknown]
  - Dyslipidaemia [Unknown]
  - Neuropathy peripheral [Unknown]
  - Diverticulitis [Unknown]
  - Intestinal resection [Unknown]
  - Umbilical hernia repair [Unknown]
  - Arthroscopy [Unknown]
  - Fall [Unknown]
  - Pain in extremity [Unknown]
